FAERS Safety Report 25394043 (Version 1)
Quarter: 2025Q2

REPORT INFORMATION
  Report Type: Report from Study
  Country: IT (occurrence: IT)
  Receive Date: 20250604
  Receipt Date: 20250604
  Transmission Date: 20250717
  Serious: Yes (Death, Life-Threatening, Hospitalization)
  Sender: RANBAXY
  Company Number: IT-SUN PHARMACEUTICAL INDUSTRIES LTD-2025R1-510064

PATIENT
  Age: 73 Year
  Sex: Male

DRUGS (4)
  1. ENOXAPARIN SODIUM [Suspect]
     Active Substance: ENOXAPARIN SODIUM
     Indication: Overdose
     Route: 065
  2. PHYTONADIONE [Suspect]
     Active Substance: PHYTONADIONE
     Indication: Overdose
     Route: 065
     Dates: start: 20150630
  3. TRANEXAMIC ACID [Suspect]
     Active Substance: TRANEXAMIC ACID
     Indication: Overdose
     Route: 065
     Dates: start: 20150630
  4. WARFARIN [Suspect]
     Active Substance: WARFARIN
     Indication: Overdose
     Dosage: UNK UNK, DAILY
     Route: 065
     Dates: start: 20150623

REACTIONS (1)
  - Treatment failure [Fatal]
